FAERS Safety Report 8297860-3 (Version None)
Quarter: 2012Q2

REPORT INFORMATION
  Report Type: 
  Country: None (occurrence: None)
  Receive Date: 20120419
  Receipt Date: 20120411
  Transmission Date: 20120825
  Serious: Yes (Hospitalization)
  Sender: FDA-Public Use
  Company Number: PHHY2012CA031675

PATIENT
  Sex: Male

DRUGS (8)
  1. CYCLOSPORINE [Interacting]
  2. AZITHROMYCIN [Concomitant]
  3. CEFTRIAXONE [Concomitant]
  4. LEVOFLOXACIN [Concomitant]
  5. AMOXICILLIN AND CLAVULANATE POTASSIUM [Concomitant]
  6. EXJADE [Suspect]
     Indication: MYELODYSPLASTIC SYNDROME
     Dosage: 2000 MG, UNK
     Route: 048
  7. BIAXIN [Interacting]
  8. SEPTRA [Concomitant]

REACTIONS (5)
  - DRUG INTERACTION [None]
  - BLOOD IRON INCREASED [None]
  - MALAISE [None]
  - PNEUMONIA [None]
  - BLOOD CREATININE INCREASED [None]
